FAERS Safety Report 8588973 (Version 3)
Quarter: 2013Q1

REPORT INFORMATION
  Report Type: Spontaneous
  Country: US (occurrence: US)
  Receive Date: 20120531
  Receipt Date: 20130315
  Transmission Date: 20140127
  Serious: Yes (Other)
  Sender: FDA-Public Use
  Company Number: US-ELI_LILLY_AND_COMPANY-US201205008286

PATIENT
  Age: 71 Year
  Sex: Female

DRUGS (3)
  1. FORTEO [Suspect]
     Dosage: 20 UG, QD
     Route: 058
     Dates: start: 201103
  2. FORTEO [Suspect]
     Dosage: 20 UG, QD
     Dates: start: 201103
  3. FORTEO [Suspect]
     Dosage: 20 UG, QD
     Dates: start: 20110322

REACTIONS (6)
  - Hip fracture [Unknown]
  - Injection site pain [Unknown]
  - Injection site bruising [Unknown]
  - Spondylitis [Not Recovered/Not Resolved]
  - Spinal deformity [Not Recovered/Not Resolved]
  - Drug dose omission [Unknown]
